FAERS Safety Report 20309372 (Version 1)
Quarter: 2022Q1

REPORT INFORMATION
  Report Type: Spontaneous
  Country: US (occurrence: US)
  Receive Date: 20220107
  Receipt Date: 20220107
  Transmission Date: 20220423
  Serious: Yes (Hospitalization)
  Sender: FDA-Public Use
  Company Number: US-MYLANLABS-2022M1001121

PATIENT
  Age: 3 Year
  Sex: Male

DRUGS (18)
  1. CLONIDINE [Suspect]
     Active Substance: CLONIDINE
     Indication: Dystonia
     Dosage: UNK
     Route: 065
  2. CLONIDINE [Suspect]
     Active Substance: CLONIDINE
     Indication: Opisthotonus
  3. CLONAZEPAM [Suspect]
     Active Substance: CLONAZEPAM
     Indication: Dystonia
     Dosage: UNK
     Route: 065
  4. CLONAZEPAM [Suspect]
     Active Substance: CLONAZEPAM
     Indication: Opisthotonus
  5. BACLOFEN [Suspect]
     Active Substance: BACLOFEN
     Indication: Dystonia
     Dosage: UNK
     Route: 065
  6. BACLOFEN [Suspect]
     Active Substance: BACLOFEN
     Indication: Opisthotonus
  7. PROPRANOLOL [Suspect]
     Active Substance: PROPRANOLOL HYDROCHLORIDE
     Indication: Dystonia
     Dosage: UNK
     Route: 065
  8. PROPRANOLOL [Suspect]
     Active Substance: PROPRANOLOL HYDROCHLORIDE
     Indication: Opisthotonus
  9. PHENOBARBITAL [Suspect]
     Active Substance: PHENOBARBITAL
     Indication: Dystonia
     Dosage: UNK
     Route: 065
  10. PHENOBARBITAL [Suspect]
     Active Substance: PHENOBARBITAL
     Indication: Opisthotonus
  11. DANTROLENE [Suspect]
     Active Substance: DANTROLENE
     Indication: Dystonia
     Dosage: UNK
     Route: 065
  12. DANTROLENE [Suspect]
     Active Substance: DANTROLENE
     Indication: Opisthotonus
  13. MORPHINE [Suspect]
     Active Substance: MORPHINE
     Indication: Dystonia
     Dosage: UNK
     Route: 065
  14. MORPHINE [Suspect]
     Active Substance: MORPHINE
     Indication: Opisthotonus
  15. ABOBOTULINUMTOXINA [Suspect]
     Active Substance: ABOBOTULINUMTOXINA
     Indication: Dystonia
     Dosage: UNK
     Route: 065
  16. ABOBOTULINUMTOXINA [Suspect]
     Active Substance: ABOBOTULINUMTOXINA
     Indication: Opisthotonus
  17. PHENOL [Suspect]
     Active Substance: PHENOL
     Indication: Dystonia
     Dosage: UNK
     Route: 065
  18. PHENOL [Suspect]
     Active Substance: PHENOL
     Indication: Opisthotonus

REACTIONS (2)
  - Drug ineffective for unapproved indication [Unknown]
  - Off label use [Unknown]
